FAERS Safety Report 20458964 (Version 1)
Quarter: 2022Q1

REPORT INFORMATION
  Report Type: Spontaneous
  Country: DE (occurrence: DE)
  Receive Date: 20220211
  Receipt Date: 20220211
  Transmission Date: 20220423
  Serious: Yes (Hospitalization, Other)
  Sender: FDA-Public Use
  Company Number: DE-DCGMA-22196379

PATIENT
  Age: 6 Year
  Sex: Female

DRUGS (1)
  1. TRENANTONE [Suspect]
     Active Substance: LEUPROLIDE ACETATE
     Indication: Precocious puberty
     Dosage: UNK
     Route: 058
     Dates: start: 20210614, end: 20210909

REACTIONS (2)
  - Cellulitis [Recovering/Resolving]
  - Injection site abscess [Recovering/Resolving]

NARRATIVE: CASE EVENT DATE: 20210601
